FAERS Safety Report 7029581-9 (Version None)
Quarter: 2010Q4

REPORT INFORMATION
  Report Type: 
  Country: None (occurrence: None)
  Receive Date: 20101005
  Receipt Date: 20100928
  Transmission Date: 20110411
  Serious: Yes (Hospitalization)
  Sender: FDA-Public Use
  Company Number: US-MERCK-1009USA05285

PATIENT
  Age: 82 Year
  Sex: Female

DRUGS (2)
  1. JANUVIA [Suspect]
     Indication: DIABETES MELLITUS
     Route: 048
     Dates: start: 20091101, end: 20091101
  2. LANTUS [Concomitant]
     Route: 065

REACTIONS (3)
  - BLOOD GLUCOSE DECREASED [None]
  - HYPERGLYCAEMIA [None]
  - MALAISE [None]
